FAERS Safety Report 19453440 (Version 1)
Quarter: 2021Q2

REPORT INFORMATION
  Report Type: Spontaneous
  Country: IL (occurrence: IL)
  Receive Date: 20210623
  Receipt Date: 20210623
  Transmission Date: 20210717
  Serious: No
  Sender: FDA-Public Use
  Company Number: IL-GW PHARMA-202105ILGW02218

PATIENT

DRUGS (4)
  1. SATIVEX [Suspect]
     Active Substance: NABIXIMOLS
     Dosage: 10 ACTUATION, QD
     Route: 002
     Dates: start: 202105, end: 202106
  2. VITAMINS NOS [Concomitant]
     Active Substance: VITAMINS
     Indication: PRODUCT USED FOR UNKNOWN INDICATION
     Dosage: UNK
     Route: 065
  3. SATIVEX [Suspect]
     Active Substance: NABIXIMOLS
     Indication: PAIN
     Dosage: UNK
     Route: 002
     Dates: start: 20210502, end: 202105
  4. IRON [Concomitant]
     Active Substance: IRON
     Indication: PRODUCT USED FOR UNKNOWN INDICATION
     Dosage: UNK
     Route: 065

REACTIONS (4)
  - Product use in unapproved indication [Unknown]
  - Depressed mood [Recovering/Resolving]
  - Drug effective for unapproved indication [Unknown]
  - Insomnia [Recovering/Resolving]

NARRATIVE: CASE EVENT DATE: 202105
